FAERS Safety Report 4859789-X (Version None)
Quarter: 2005Q4

REPORT INFORMATION
  Report Type: 
  Country: None (occurrence: None)
  Receive Date: 20051219
  Receipt Date: 20051214
  Transmission Date: 20060501
  Serious: Yes (Other)
  Sender: FDA-Public Use
  Company Number: PHBS2005JP18406

PATIENT
  Sex: Female

DRUGS (3)
  1. MEDET [Suspect]
     Indication: DIABETES MELLITUS
     Route: 048
     Dates: start: 20030101
  2. BASEN [Suspect]
     Indication: DIABETES MELLITUS
     Route: 048
     Dates: start: 20030101
  3. STARSIS [Suspect]
     Indication: DIABETES MELLITUS

REACTIONS (1)
  - HEPATIC STEATOSIS [None]
